FAERS Safety Report 5584330-6 (Version None)
Quarter: 2008Q1

REPORT INFORMATION
  Report Type: 
  Country: None (occurrence: None)
  Receive Date: 20080108
  Receipt Date: 20071224
  Transmission Date: 20080703
  Serious: Yes (Hospitalization)
  Sender: FDA-Public Use
  Company Number: GB-BAUSCH-2007BL004617

PATIENT
  Age: 86 Year
  Sex: Female
  Weight: 57 kg

DRUGS (9)
  1. PREDNISOLONE SODIUM PHOSPHATE [Suspect]
     Indication: LOWER RESPIRATORY TRACT INFECTION
     Dates: start: 20071120, end: 20071126
  2. ACETYL SALICYLIC ACID COMPOUND TAB [Suspect]
     Indication: MYOCARDIAL ISCHAEMIA
     Route: 048
     Dates: start: 19990101, end: 20071126
  3. FLUOXETINE /N/A/ [Suspect]
     Indication: DEPRESSION
     Route: 048
     Dates: start: 20030101, end: 20071126
  4. AMLODIPINE [Concomitant]
  5. IPRATROPIUM BROMIDE [Concomitant]
  6. LISINOPRIL [Concomitant]
  7. ALBUTEROL [Concomitant]
     Dosage: DOSE UNIT:UNKNOWN
  8. SERETIDE ^GLAXO WELLCOME^ [Concomitant]
     Dosage: DOSE UNIT:UNKNOWN
  9. SIMVASTATIN [Concomitant]

REACTIONS (2)
  - GASTROINTESTINAL HAEMORRHAGE [None]
  - HAEMATEMESIS [None]
